FAERS Safety Report 15000939 (Version 1)
Quarter: 2018Q2

REPORT INFORMATION
  Report Type: Spontaneous
  Country: US (occurrence: US)
  Receive Date: 20180521
  Receipt Date: 20180521
  Transmission Date: 20180711
  Serious: Yes (Hospitalization)
  Sender: FDA-Public Use
  Company Number: None

PATIENT
  Age: 43 Year
  Sex: Female

DRUGS (9)
  1. CLINDAMYCIN. [Concomitant]
     Active Substance: CLINDAMYCIN
  2. LEVOTHYROXINE. [Concomitant]
     Active Substance: LEVOTHYROXINE
  3. CEPHALEXIN. [Concomitant]
     Active Substance: CEPHALEXIN
  4. TEMOZOLOMIDE. [Suspect]
     Active Substance: TEMOZOLOMIDE
     Indication: NEOPLASM MALIGNANT
     Route: 048
     Dates: start: 20170601, end: 20180304
  5. ESOMEPRAZOLE [Concomitant]
     Active Substance: ESOMEPRAZOLE
  6. ONDANSETRON [Concomitant]
     Active Substance: ONDANSETRON
  7. DEXAMETHASONE. [Concomitant]
     Active Substance: DEXAMETHASONE
  8. LEVETIRACETAM. [Concomitant]
     Active Substance: LEVETIRACETAM
  9. MAGIC MOUTHWASH [Concomitant]
     Active Substance: DIPHENHYDRAMINE HYDROCHLORIDE\LIDOCAINE HYDROCHLORIDE\NYSTATIN

REACTIONS (3)
  - Vaginal haemorrhage [None]
  - Contusion [None]
  - Epistaxis [None]

NARRATIVE: CASE EVENT DATE: 20180304
